FAERS Safety Report 6616804-0 (Version None)
Quarter: 2010Q1

REPORT INFORMATION
  Report Type: 
  Country: None (occurrence: None)
  Receive Date: 20100305
  Receipt Date: 20091106
  Transmission Date: 20100710
  Serious: Yes (Hospitalization, Other)
  Sender: FDA-Public Use
  Company Number: US-MERCK-0910USA00369

PATIENT
  Age: 64 Year
  Sex: Male

DRUGS (5)
  1. JANUMET [Suspect]
     Indication: DIABETES MELLITUS
     Route: 048
  2. GLYBURIDE [Concomitant]
     Route: 065
  3. LIPITOR [Concomitant]
     Route: 065
  4. TYLENOL-500 [Concomitant]
     Indication: PAIN
     Route: 065
  5. BENAZEPRIL HYDROCHLORIDE [Concomitant]
     Route: 065

REACTIONS (5)
  - CHEST PAIN [None]
  - GASTRITIS [None]
  - GASTROINTESTINAL ULCER [None]
  - PANCREATITIS [None]
  - PANCREATITIS ACUTE [None]
